FAERS Safety Report 10463636 (Version 1)
Quarter: 2014Q3

REPORT INFORMATION
  Report Type: Spontaneous
  Country: US (occurrence: None)
  Receive Date: 20140918
  Receipt Date: 20140918
  Transmission Date: 20150326
  Serious: Yes (Hospitalization)
  Sender: FDA-Public Use
  Company Number: None

PATIENT
  Age: 59 Year
  Sex: Male
  Weight: 117.94 kg

DRUGS (1)
  1. LOSARTAN/HCTZ [Suspect]
     Active Substance: HYDROCHLOROTHIAZIDE\LOSARTAN
     Indication: BLOOD PRESSURE
     Dosage: 1 PILL ONCE DAILY TAKEN BY MOUTH
     Route: 048
     Dates: start: 20140515, end: 20140730

REACTIONS (10)
  - Myocardial infarction [None]
  - Pruritus [None]
  - Abdominal pain upper [None]
  - Pulmonary embolism [None]
  - Somnolence [None]
  - Dyspnoea [None]
  - Hypersensitivity [None]
  - Rash [None]
  - Dizziness [None]
  - Dyspnoea exertional [None]

NARRATIVE: CASE EVENT DATE: 20140803
